FAERS Safety Report 11838719 (Version 1)
Quarter: 2015Q4

REPORT INFORMATION
  Report Type: Spontaneous
  Country: US (occurrence: US)
  Receive Date: 20151215
  Receipt Date: 20151215
  Transmission Date: 20160305
  Serious: No
  Sender: FDA-Public Use
  Company Number: US-SA-2015SA024210

PATIENT
  Age: 40 Year
  Sex: Female

DRUGS (1)
  1. FERRLECIT [Suspect]
     Active Substance: SODIUM FERRIC GLUCONATE COMPLEX
     Indication: IRON DEFICIENCY ANAEMIA
     Dosage: DOSE AND FREQUENCY: 125MG TEST DOSE OVER15 MIN, REMAINING 112MG INFUSED OVER1 HOUR.?FORM: INFUSION.
     Route: 065
     Dates: start: 20150204, end: 20150204

REACTIONS (7)
  - Nausea [Recovered/Resolved]
  - Peripheral swelling [Recovered/Resolved]
  - Hyperhidrosis [Recovered/Resolved]
  - Back pain [Recovered/Resolved]
  - Blood pressure decreased [Recovered/Resolved]
  - Abdominal pain [Recovered/Resolved]
  - Pruritus [Recovered/Resolved]

NARRATIVE: CASE EVENT DATE: 20150204
